FAERS Safety Report 4964630-0 (Version None)
Quarter: 2006Q2

REPORT INFORMATION
  Report Type: 
  Country: None (occurrence: None)
  Receive Date: 20060406
  Receipt Date: 20051013
  Transmission Date: 20061013
  Serious: Yes (Death, Hospitalization)
  Sender: FDA-Public Use
  Company Number: US-MERCK-0510USA07013

PATIENT
  Age: 22 Year
  Sex: Male
  Weight: 80 kg

DRUGS (7)
  1. VIOXX [Suspect]
     Indication: PAIN
     Route: 048
     Dates: start: 20001001
  2. VIOXX [Suspect]
     Route: 048
     Dates: start: 19990101
  3. VIOXX [Suspect]
     Indication: INFLAMMATION
     Route: 048
     Dates: start: 20001001
  4. VIOXX [Suspect]
     Route: 048
     Dates: start: 19990101
  5. IBUPROFEN [Concomitant]
     Route: 065
  6. DILANTIN [Concomitant]
     Indication: CONVULSION
     Route: 065
  7. DILANTIN [Concomitant]
     Route: 065

REACTIONS (13)
  - CARDIO-RESPIRATORY ARREST [None]
  - CONVERSION DISORDER [None]
  - CONVULSION [None]
  - EPIDIDYMITIS [None]
  - FEELING JITTERY [None]
  - INGUINAL HERNIA [None]
  - NAUSEA [None]
  - NECK PAIN [None]
  - PARAESTHESIA [None]
  - ROAD TRAFFIC ACCIDENT [None]
  - SENSATION OF FOREIGN BODY [None]
  - THROAT IRRITATION [None]
  - VOMITING [None]
